FAERS Safety Report 7064846-6 (Version None)
Quarter: 2010Q4

REPORT INFORMATION
  Report Type: 
  Country: None (occurrence: None)
  Receive Date: 20101027
  Receipt Date: 19870720
  Transmission Date: 20110411
  Serious: Yes (Death, Hospitalization)
  Sender: FDA-Public Use
  Company Number: US-ROCHE-870200875001

PATIENT
  Age: 85 Year
  Sex: Female

DRUGS (4)
  1. ROCEPHIN [Suspect]
     Route: 042
     Dates: start: 19870418, end: 19870424
  2. QUINIDINE HCL [Concomitant]
     Route: 048
  3. LANOXIN [Concomitant]
     Route: 048
  4. INDOCIN [Concomitant]
     Route: 048

REACTIONS (2)
  - CARDIAC ARREST [None]
  - PSEUDOMEMBRANOUS COLITIS [None]
